FAERS Safety Report 6771979-8 (Version None)
Quarter: 2010Q2

REPORT INFORMATION
  Report Type: 
  Country: None (occurrence: None)
  Receive Date: 20100616
  Receipt Date: 20091130
  Transmission Date: 20101027
  Serious: No
  Sender: FDA-Public Use
  Company Number: US-ASTRAZENECA-2009SE29722

PATIENT
  Age: 32 Year
  Sex: Female

DRUGS (1)
  1. RHINOCORT [Suspect]
     Indication: NASAL CONGESTION
     Dosage: 64 UG TOTAL DAILY DOSE; ONE SPRAY IN EACH NOSTRIL ONCE A DAY
     Route: 045

REACTIONS (1)
  - DRUG EXPOSURE DURING PREGNANCY [None]
